FAERS Safety Report 8275448 (Version 3)
Quarter: 2012Q4

REPORT INFORMATION
  Report Type: 
  Country: JP (occurrence: JP)
  Receive Date: 20111205
  Receipt Date: 20120905
  Transmission Date: 20130627
  Serious: Yes (Death)
  Sender: FDA-Public Use
  Company Number: JP-PFIZER INC-2011294196

PATIENT
  Age: 52 Year
  Sex: Male
  Weight: 46 kg

DRUGS (6)
  1. IRINOTECAN [Suspect]
     Indication: COLON CANCER
     Dosage: 225 mg/body, 1x/day (150 mg/m2)
     Route: 041
     Dates: start: 20110322, end: 20110322
  2. VECTIBIX [Suspect]
     Indication: COLON CANCER
     Dosage: 275 mg/body, 1x/day
     Route: 041
     Dates: start: 20110322, end: 20110322
  3. DECADRON [Concomitant]
     Dosage: UNK
     Dates: start: 20110322, end: 20110322
  4. KYTRIL [Concomitant]
     Dosage: UNK
     Dates: start: 20110322, end: 20110322
  5. NEUTROGIN [Concomitant]
     Dosage: UNK
     Dates: start: 20110401, end: 20110401
  6. FIRSTCIN [Concomitant]
     Dosage: UNK
     Dates: start: 20110401, end: 20110401

REACTIONS (2)
  - Intestinal perforation [Fatal]
  - Peritonitis [None]
